FAERS Safety Report 14675798 (Version 5)
Quarter: 2019Q1

REPORT INFORMATION
  Report Type: Report from Study
  Country: JP (occurrence: JP)
  Receive Date: 20180323
  Receipt Date: 20190111
  Transmission Date: 20190417
  Serious: Yes (Death, Hospitalization)
  Sender: FDA-Public Use
  Company Number: JP-PFIZER INC-2018122054

PATIENT
  Age: 42 Year
  Sex: Female

DRUGS (6)
  1. PREDONINE [Concomitant]
     Active Substance: PREDNISOLONE
     Dosage: 15 MG, DAILY
     Route: 048
     Dates: start: 20180130, end: 20180208
  2. BONOTEO [Concomitant]
     Active Substance: MINODRONIC ACID
     Dosage: UNK
     Route: 048
     Dates: start: 20170120
  3. TRAMCET [Concomitant]
     Active Substance: ACETAMINOPHEN\TRAMADOL
     Dosage: UNK
     Route: 048
     Dates: start: 20161216
  4. LYRICA [Concomitant]
     Active Substance: PREGABALIN
     Dosage: UNK
     Route: 048
     Dates: start: 20170512
  5. XELJANZ [Suspect]
     Active Substance: TOFACITINIB CITRATE
     Indication: RHEUMATOID ARTHRITIS
     Dosage: 5 MG, 2X/DAY
     Route: 048
     Dates: start: 20170210, end: 20180120
  6. PREDONINE [Concomitant]
     Active Substance: PREDNISOLONE
     Indication: RHEUMATOID ARTHRITIS
     Dosage: 10 MG, DAILY
     Route: 048
     Dates: start: 20170106, end: 20180129

REACTIONS (2)
  - Vasculitis [Fatal]
  - Liver disorder [Fatal]

NARRATIVE: CASE EVENT DATE: 2018
